FAERS Safety Report 8274724-2 (Version None)
Quarter: 2012Q2

REPORT INFORMATION
  Report Type: 
  Country: None (occurrence: None)
  Receive Date: 20120411
  Receipt Date: 20120405
  Transmission Date: 20120825
  Serious: Yes (Hospitalization, Disabling)
  Sender: FDA-Public Use
  Company Number: US-MERCK-1201USA03543

PATIENT
  Age: 70 Year
  Sex: Female

DRUGS (2)
  1. SINGULAIR [Concomitant]
     Route: 048
  2. FOSAMAX [Suspect]
     Dosage: ^ABOUT 20 YEARS AGO^
     Route: 048
     Dates: end: 20120101

REACTIONS (1)
  - FEMUR FRACTURE [None]
